FAERS Safety Report 21194260 (Version 1)
Quarter: 2022Q3

REPORT INFORMATION
  Report Type: Report from Study
  Country: US (occurrence: US)
  Receive Date: 20220810
  Receipt Date: 20220810
  Transmission Date: 20221027
  Serious: Yes (Death, Other)
  Sender: FDA-Public Use
  Company Number: US-BRISTOL-MYERS SQUIBB COMPANY-BMS-2019-059009

PATIENT
  Age: 37 Year
  Sex: Male
  Weight: 79.00 kg

DRUGS (4)
  1. NIVOLUMAB [Suspect]
     Active Substance: NIVOLUMAB
     Indication: Nasopharyngeal cancer
     Dosage: 1 DOSAGE FORM
     Route: 065
     Dates: start: 20190517, end: 20190517
  2. NIVOLUMAB [Suspect]
     Active Substance: NIVOLUMAB
     Dosage: 480MG ON DAY 1( DOSE=240MG ON DAY 15)
     Route: 042
     Dates: start: 20190517, end: 20190517
  3. COPANLISIB [Suspect]
     Active Substance: COPANLISIB
     Indication: Nasopharyngeal cancer
     Dosage: 60MG ON DAYS 1,8 +15 OF 28 DAY CYCLE
     Route: 042
     Dates: start: 20190503, end: 20190517
  4. COPANLISIB [Suspect]
     Active Substance: COPANLISIB
     Dosage: DAYS 1,8 +15 OF 28 DAY CYCLE
     Route: 042
     Dates: start: 20190503, end: 20190517

REACTIONS (2)
  - Rash maculo-papular [Recovered/Resolved]
  - Death [Fatal]

NARRATIVE: CASE EVENT DATE: 20190520
